FAERS Safety Report 18717904 (Version 1)
Quarter: 2021Q1

REPORT INFORMATION
  Report Type: Spontaneous
  Country: US (occurrence: US)
  Receive Date: 20210108
  Receipt Date: 20210108
  Transmission Date: 20210419
  Serious: Yes (Other)
  Sender: FDA-Public Use
  Company Number: None

PATIENT
  Age: 45 Year
  Sex: Female
  Weight: 67.5 kg

DRUGS (4)
  1. BUPROPION XL150MG  TABLETS [Concomitant]
     Dates: start: 20191110
  2. ADDERALL ER 15MG CAPSULES [Concomitant]
     Dates: start: 20190815
  3. VORTIOXETINE 20MG TABLETS [Concomitant]
     Dates: start: 20190810
  4. PAROXETINE. [Suspect]
     Active Substance: PAROXETINE
     Indication: MAJOR DEPRESSION
     Route: 048
     Dates: start: 20190721, end: 20201130

REACTIONS (1)
  - Alopecia [None]

NARRATIVE: CASE EVENT DATE: 20201130
